FAERS Safety Report 21090452 (Version 1)
Quarter: 2022Q3

REPORT INFORMATION
  Report Type: Spontaneous
  Country: JP (occurrence: JP)
  Receive Date: 20220715
  Receipt Date: 20220715
  Transmission Date: 20221027
  Serious: Yes (Other)
  Sender: FDA-Public Use
  Company Number: JP-JNJFOC-20220723584

PATIENT
  Sex: Female

DRUGS (1)
  1. IMBRUVICA [Suspect]
     Active Substance: IBRUTINIB
     Indication: Product used for unknown indication
     Dosage: DOSE UNKNOWN
     Route: 048

REACTIONS (6)
  - Internal haemorrhage [Unknown]
  - Haemorrhage subcutaneous [Unknown]
  - Platelet count decreased [Unknown]
  - Wound [Unknown]
  - Weight increased [Unknown]
  - Insomnia [Unknown]
